FAERS Safety Report 4570618-4 (Version None)
Quarter: 2005Q1

REPORT INFORMATION
  Report Type: 
  Country: None (occurrence: None)
  Receive Date: 20050204
  Receipt Date: 20050129
  Transmission Date: 20050727
  Serious: Yes (Disabling)
  Sender: FDA-Public Use
  Company Number: GB-GLAXOSMITHKLINE-B0369215A

PATIENT
  Age: 50 Year
  Sex: Female
  Weight: 55 kg

DRUGS (4)
  1. SEROXAT [Suspect]
     Indication: DEPRESSION
     Route: 048
     Dates: start: 20040301, end: 20041204
  2. FOSAMAX [Concomitant]
     Indication: OSTEOPOROSIS
     Dosage: 1UNIT WEEKLY
     Route: 048
     Dates: start: 20040201
  3. SOLPADOL [Concomitant]
     Indication: FIBROMYALGIA
     Route: 048
     Dates: start: 20000101
  4. SANDO-K [Concomitant]
     Indication: BULIMIA NERVOSA
     Route: 048
     Dates: start: 19860101

REACTIONS (10)
  - AGITATION [None]
  - DIZZINESS [None]
  - DRUG WITHDRAWAL SYNDROME [None]
  - HYPOAESTHESIA [None]
  - INFLUENZA LIKE ILLNESS [None]
  - NIGHT SWEATS [None]
  - NIGHTMARE [None]
  - PARAESTHESIA [None]
  - PYREXIA [None]
  - SLEEP DISORDER [None]
